FAERS Safety Report 7434720-1 (Version None)
Quarter: 2011Q2

REPORT INFORMATION
  Report Type: 
  Country: None (occurrence: None)
  Receive Date: 20110425
  Receipt Date: 20110419
  Transmission Date: 20111010
  Serious: Yes (Other)
  Sender: FDA-Public Use
  Company Number: US-PFIZER INC-2011067403

PATIENT
  Sex: Female
  Weight: 113 kg

DRUGS (2)
  1. ABILIFY [Concomitant]
     Indication: BIPOLAR DISORDER
     Dosage: UNK
  2. EFFEXOR XR [Suspect]
     Indication: DEPRESSION
     Dosage: UNK
     Route: 048
     Dates: start: 20010101, end: 20110323

REACTIONS (1)
  - PALPITATIONS [None]
